FAERS Safety Report 11595049 (Version 4)
Quarter: 2016Q1

REPORT INFORMATION
  Report Type: Report from Study
  Country: BR (occurrence: BR)
  Receive Date: 20151005
  Receipt Date: 20160113
  Transmission Date: 20160525
  Serious: Yes (Hospitalization, Other)
  Sender: FDA-Public Use
  Company Number: BR-ROCHE-1641198

PATIENT
  Age: 54 Year
  Sex: Female
  Weight: 61 kg

DRUGS (8)
  1. PREDNISONE. [Suspect]
     Active Substance: PREDNISONE
     Indication: PAIN
     Route: 065
  2. AMLODIPINE [Concomitant]
     Active Substance: AMLODIPINE BESYLATE
     Indication: HYPERTENSION
  3. LOSARTAN. [Concomitant]
     Active Substance: LOSARTAN
  4. HYDREA [Concomitant]
     Active Substance: HYDROXYUREA
  5. CAPTOPRIL. [Concomitant]
     Active Substance: CAPTOPRIL
  6. METFORMIN HYDROCHLORIDE. [Concomitant]
     Active Substance: METFORMIN HYDROCHLORIDE
  7. ACTEMRA [Suspect]
     Active Substance: TOCILIZUMAB
     Indication: RHEUMATOID ARTHRITIS
     Dosage: RECEIVED INFUSION UNTIL 03/AUG/2015
     Route: 042
     Dates: start: 20150702
  8. VALSARTAN COMP [Concomitant]
     Active Substance: HYDROCHLOROTHIAZIDE\VALSARTAN

REACTIONS (7)
  - Diabetes mellitus [Unknown]
  - Drug ineffective [Unknown]
  - Joint tuberculosis [Unknown]
  - Infection [Unknown]
  - Disease progression [Unknown]
  - Peripheral swelling [Recovering/Resolving]
  - Abasia [Recovering/Resolving]

NARRATIVE: CASE EVENT DATE: 201509
